FAERS Safety Report 9348035 (Version 2)
Quarter: 2013Q2

REPORT INFORMATION
  Report Type: Spontaneous
  Country: US (occurrence: US)
  Receive Date: 20130614
  Receipt Date: 20130620
  Transmission Date: 20140414
  Serious: No
  Sender: FDA-Public Use
  Company Number: US-009507513-1306USA003947

PATIENT
  Sex: Female
  Weight: 57.6 kg

DRUGS (2)
  1. IMPLANON [Suspect]
     Dosage: 1 ROD, INSERTED FOR UP TO3 YEARS
     Route: 059
     Dates: start: 20120308, end: 20130606
  2. NEXPLANON [Concomitant]
     Dosage: 1 DF, UNK
     Route: 059
     Dates: start: 201306

REACTIONS (2)
  - Device breakage [Recovered/Resolved]
  - No adverse event [Unknown]
